FAERS Safety Report 9023452 (Version 1)
Quarter: 2013Q1

REPORT INFORMATION
  Report Type: Report from Study
  Country: DE (occurrence: DE)
  Receive Date: 20130121
  Receipt Date: 20130121
  Transmission Date: 20140127
  Serious: Yes (Hospitalization)
  Sender: FDA-Public Use
  Company Number: DE-BAXTER-2013BAX002151

PATIENT
  Age: 54 None
  Sex: Female
  Weight: 99 kg

DRUGS (6)
  1. ENDOXAN 1G [Suspect]
     Indication: HER-2 POSITIVE BREAST CANCER
     Route: 042
     Dates: start: 20100314
  2. TRASTUZUMAB [Suspect]
     Indication: HER-2 POSITIVE BREAST CANCER
     Route: 042
     Dates: start: 20100311
  3. TRASTUZUMAB [Suspect]
     Route: 042
     Dates: start: 20100401
  4. EPIRUBICIN [Suspect]
     Indication: HER-2 POSITIVE BREAST CANCER
     Route: 042
     Dates: start: 20100314
  5. DOCETAXEL [Suspect]
     Indication: HER-2 POSITIVE BREAST CANCER
     Route: 042
     Dates: start: 20100304
  6. FLUOROURACIL [Suspect]
     Indication: HER-2 POSITIVE BREAST CANCER
     Route: 042
     Dates: start: 20100314

REACTIONS (1)
  - General physical health deterioration [Recovered/Resolved]
